FAERS Safety Report 6183668-1 (Version None)
Quarter: 2009Q2

REPORT INFORMATION
  Report Type: 
  Country: None (occurrence: None)
  Receive Date: 20090508
  Receipt Date: 20090427
  Transmission Date: 20091009
  Serious: Yes (Other)
  Sender: FDA-Public Use
  Company Number: GR-PFIZER INC-2009204478

PATIENT
  Age: 80 Year

DRUGS (1)
  1. CORTISONE ACETATE [Suspect]
     Indication: ARTHRITIS

REACTIONS (1)
  - OSTEONECROSIS [None]
